FAERS Safety Report 21683785 (Version 1)
Quarter: 2022Q4

REPORT INFORMATION
  Report Type: Report from Study
  Country: EG (occurrence: EG)
  Receive Date: 20221205
  Receipt Date: 20221205
  Transmission Date: 20230113
  Serious: Yes (Other)
  Sender: FDA-Public Use
  Company Number: EG-002147023-NVSC2022EG281295

PATIENT
  Age: 50 Year
  Sex: Female

DRUGS (5)
  1. GILENYA [Suspect]
     Active Substance: FINGOLIMOD HYDROCHLORIDE
     Indication: Multiple sclerosis
     Dosage: 0.5 MG, QD (STARTED 2 YEARS AGO)
     Route: 048
     Dates: end: 20220904
  2. BENFOTIAMINE\CYANOCOBALAMIN\PYRIDOXINE HYDROCHLORIDE [Concomitant]
     Active Substance: BENFOTIAMINE\CYANOCOBALAMIN\PYRIDOXINE HYDROCHLORIDE
     Indication: Supplementation therapy
     Dosage: UNK, BID, (TWO YEARS AGO)
     Route: 048
  3. DIMRA [Concomitant]
     Indication: Supplementation therapy
     Dosage: UNK, QD, (ONE YEAR AGO)
     Route: 048
  4. LANTUS [Concomitant]
     Active Substance: INSULIN GLARGINE
     Indication: Diabetes mellitus
     Dosage: UNK, QD
     Route: 048
     Dates: start: 202210, end: 20221108
  5. INSULIN NOS [Concomitant]
     Active Substance: INSULIN NOS
     Indication: Diabetes mellitus
     Dosage: :35 UNITS IN THE MORNING AND 20 UNITS AT NIGHT
     Route: 065

REACTIONS (8)
  - Hypoaesthesia [Not Recovered/Not Resolved]
  - Movement disorder [Recovering/Resolving]
  - Limb discomfort [Not Recovered/Not Resolved]
  - Dysstasia [Not Recovered/Not Resolved]
  - Gait inability [Not Recovered/Not Resolved]
  - Hyperglycaemia [Recovered/Resolved]
  - Blood pressure increased [Not Recovered/Not Resolved]
  - Cerebral thrombosis [Recovered/Resolved]

NARRATIVE: CASE EVENT DATE: 20211201
